FAERS Safety Report 8663178 (Version 5)
Quarter: 2012Q4

REPORT INFORMATION
  Report Type: 
  Country: JP (occurrence: JP)
  Receive Date: 20120713
  Receipt Date: 20120925
  Transmission Date: 20130627
  Serious: Yes (Life-Threatening, Hospitalization, Disabling, Other)
  Sender: FDA-Public Use
  Company Number: JP-TEVA-347828USA

PATIENT
  Age: 54 None
  Sex: Male
  Weight: 57 kg

DRUGS (23)
  1. TREANDA [Suspect]
     Indication: B-CELL LYMPHOMA
     Route: 042
     Dates: start: 20110413
  2. RITUXIMAB [Suspect]
     Indication: HISTIOCYTOSIS HAEMATOPHAGIC
     Route: 042
     Dates: start: 20110413
  3. RITUXIMAB [Suspect]
     Indication: B-CELL LYMPHOMA
     Dosage: cycle 3 % 4
     Route: 042
     Dates: start: 20110525
  4. ETOPOSIDE [Suspect]
     Indication: HISTIOCYTOSIS HAEMATOPHAGIC
     Route: 042
     Dates: start: 20110913
  5. CYCLOPHOSPHAMIDE [Suspect]
     Indication: B-CELL LYMPHOMA
     Dosage: 1200 Milligram Daily;
     Route: 042
     Dates: start: 20110927, end: 20111017
  6. CYCLOPHOSPHAMIDE [Suspect]
     Indication: HISTIOCYTOSIS HAEMATOPHAGIC
  7. DOXORUBICIN HYDROCHLORIDE [Suspect]
     Indication: HISTIOCYTOSIS HAEMATOPHAGIC
     Route: 042
     Dates: start: 20110927
  8. VINCRISTINE SULFATE [Suspect]
     Indication: B-CELL LYMPHOMA
     Dosage: 2 Milligram Daily;
     Route: 042
     Dates: start: 20110927
  9. VINCRISTINE SULFATE [Suspect]
     Indication: HISTIOCYTOSIS HAEMATOPHAGIC
  10. PREDNISOLONE [Suspect]
     Indication: B-CELL LYMPHOMA
     Dosage: 60 Milligram Daily;
     Route: 048
     Dates: start: 20110909, end: 20111017
  11. PREDNISOLONE [Suspect]
     Indication: HISTIOCYTOSIS HAEMATOPHAGIC
  12. CICLOSPORIN [Suspect]
     Indication: HISTIOCYTOSIS HAEMATOPHAGIC
     Route: 048
     Dates: start: 20110912, end: 20111003
  13. CICLOSPORIN [Suspect]
     Route: 048
     Dates: start: 20111004, end: 20111006
  14. PIRARUBICIN HYDROCHLORIDE [Concomitant]
     Indication: B-CELL LYMPHOMA
     Dosage: 80 Milligram Daily;
     Dates: start: 20110927, end: 20111017
  15. TRAMADOL HYDROCHLORIDE [Concomitant]
     Dates: start: 20111008, end: 20111123
  16. IRSOGALDINE MALEATE [Concomitant]
     Dates: start: 20111008, end: 20120118
  17. MAGNESIUM OXIDE [Concomitant]
     Dates: start: 20111008, end: 20111019
  18. VALACICLOVIR HYDROCHLORIDE [Concomitant]
     Dates: start: 20111008, end: 20111019
  19. FLUCONAZOLE [Concomitant]
     Dates: start: 20111008, end: 20111123
  20. ZOLPIDEM TARTRATE [Concomitant]
     Dates: start: 20111008, end: 20111116
  21. SODIUM RABEPRAZOLE [Concomitant]
     Dates: start: 20111008, end: 20120118
  22. TIQUIZIUM BROMIDE [Concomitant]
     Dates: start: 20111012, end: 20111109
  23. CLOSTRIDIUM BUTYRICUM [Concomitant]
     Dates: start: 20111016, end: 20111219

REACTIONS (5)
  - Cytomegalovirus hepatitis [Recovering/Resolving]
  - Cytomegalovirus chorioretinitis [Recovering/Resolving]
  - Cytomegalovirus enterocolitis [Recovering/Resolving]
  - Histiocytosis haematophagic [Recovering/Resolving]
  - Pancytopenia [Recovering/Resolving]
